FAERS Safety Report 6480543-X (Version None)
Quarter: 2009Q4

REPORT INFORMATION
  Report Type: 
  Country: None (occurrence: None)
  Receive Date: 20091203
  Receipt Date: 20091118
  Transmission Date: 20100525
  Serious: Yes (Hospitalization)
  Sender: FDA-Public Use
  Company Number: NSR_00020_2009

PATIENT
  Age: 43 Year
  Sex: Female

DRUGS (3)
  1. IBUPROFEN TABLETS [Suspect]
     Indication: DRUG USE FOR UNKNOWN INDICATION
     Dosage: (95400 MG 1X, ORAL)
     Route: 048
  2. NICOTINE [Concomitant]
  3. CAFFEINE [Concomitant]

REACTIONS (8)
  - BLOOD PH DECREASED [None]
  - BLOOD PRESSURE DECREASED [None]
  - CONTINUOUS HAEMODIAFILTRATION [None]
  - HALLUCINATION, AUDITORY [None]
  - HEART RATE DECREASED [None]
  - INCORRECT DOSE ADMINISTERED [None]
  - PARANOIA [None]
  - UNRESPONSIVE TO STIMULI [None]
